FAERS Safety Report 4383067-9 (Version None)
Quarter: 2004Q2

REPORT INFORMATION
  Report Type: 
  Country: None (occurrence: None)
  Receive Date: 20040618
  Receipt Date: 20040608
  Transmission Date: 20050107
  Serious: Yes (Hospitalization)
  Sender: FDA-Public Use
  Company Number: FR-2004-026897

PATIENT
  Age: 72 Year
  Sex: Male
  Weight: 70 kg

DRUGS (4)
  1. SOTALOL HCL [Suspect]
     Indication: ATRIAL FIBRILLATION
     Dosage: 1X/DAY, ORAL
     Route: 048
     Dates: start: 20040330, end: 20040414
  2. PREVISCAN (FLUINDIONE) [Suspect]
     Indication: ANGINA PECTORIS
     Dosage: 20 MG, ORAL
     Route: 048
     Dates: start: 20040330, end: 20040414
  3. ZOCOR [Concomitant]
  4. TILDIEM - SLOW RELEASE ^LOREX^ (DILTIAZEM HYDROCHLORIDE) [Concomitant]

REACTIONS (12)
  - ANTINUCLEAR ANTIBODY POSITIVE [None]
  - ARTHRALGIA [None]
  - DERMATITIS BULLOUS [None]
  - DERMATITIS EXFOLIATIVE [None]
  - MYALGIA [None]
  - RASH PAPULAR [None]
  - SKIN BLEEDING [None]
  - SKIN LESION [None]
  - SKIN NECROSIS [None]
  - SKIN NODULE [None]
  - TOXIC SKIN ERUPTION [None]
  - URTICARIA GENERALISED [None]
